FAERS Safety Report 5368357-5 (Version None)
Quarter: 2007Q2

REPORT INFORMATION
  Report Type: 
  Country: None (occurrence: None)
  Receive Date: 20070622
  Receipt Date: 20070622
  Transmission Date: 20071010
  Serious: No
  Sender: FDA-Public Use
  Company Number: None

PATIENT
  Sex: Female
  Weight: 57.6 kg

DRUGS (3)
  1. CARBOPLATIN [Suspect]
  2. TAXOTERE [Suspect]
  3. TAXOL [Suspect]

REACTIONS (1)
  - NEUTROPENIA [None]
